FAERS Safety Report 8065592-2 (Version None)
Quarter: 2012Q1

REPORT INFORMATION
  Report Type: 
  Country: None (occurrence: None)
  Receive Date: 20120117
  Receipt Date: 20120105
  Transmission Date: 20120608
  Serious: Yes (Other)
  Sender: FDA-Public Use
  Company Number: 1000026551

PATIENT
  Age: 91 Year
  Sex: Female

DRUGS (19)
  1. SP (DEQUALINIUM CHLORIDE) (DEQUALINIUM CHLORIDE) [Concomitant]
  2. PARIET (RABEPRAZOLE SODIUM) (RABEPRAZOLE SODIUM) [Concomitant]
  3. ALDACTONE-A (SPIRONOLACTONE) (SPIRONOLACTONE) [Concomitant]
  4. AMARYL [Concomitant]
  5. PRORENAL (LIMAPROST) (LIMAPROST) [Concomitant]
  6. GS PLASTER H (GLYCOL SALICYLATE) (GLYCOL SALICYLATE) [Concomitant]
  7. GS PLASTER C (GLYCOL SALICYLATE, MENTHOL) (GLYCOL SALICYLATE, MENTHOL) [Concomitant]
  8. MEMANTINE HYDROCHLORIDE [Suspect]
     Indication: DEMENTIA ALZHEIMER'S TYPE
     Dosage: 5 MG (5 MG, 1 IN 1 D), ORAL
     Route: 048
     Dates: start: 20110625, end: 20110629
  9. BENET (RISEDRONATE SODIUM0 (RISEDRONATE SODIUM) [Concomitant]
  10. DIOVAN [Concomitant]
  11. ZOLPIDEM TARTRATE [Concomitant]
  12. RIZE (CLOTIAZEPAM) (CLOTIAZEPAM) [Concomitant]
  13. ARICEPT D (DONEPEZIL HYDROCHLORIDE) (DONEPEZIL HYDROCHLORIDE) [Concomitant]
  14. PLETAAL (CILOSTAZOL) (CILOSTAZOL) [Concomitant]
  15. PRAVASTATIN SODIUM [Concomitant]
  16. MEXITIL (MEXILETINE HYDROCHLORIDE) (MEXILETINE HYDROCHLORIDE) [Concomitant]
  17. GASMOTIN (MOSAPRIDE CITRATE) (MOSAPRIDE CITRATE) [Concomitant]
  18. MUCOSTA (REBAMIPIDE) (REBAMIPIDE) [Concomitant]
  19. KETOPROFEN [Concomitant]

REACTIONS (3)
  - FAECAL INCONTINENCE [None]
  - FEELING ABNORMAL [None]
  - ABASIA [None]
